FAERS Safety Report 17427675 (Version 2)
Quarter: 2020Q1

REPORT INFORMATION
  Report Type: Spontaneous
  Country: JP (occurrence: JP)
  Receive Date: 20200217
  Receipt Date: 20200305
  Transmission Date: 20200409
  Serious: Yes (Life-Threatening, Hospitalization)
  Sender: FDA-Public Use
  Company Number: JP-MALLINCKRODT-T202000724

PATIENT
  Age: 73 Year
  Sex: Male

DRUGS (12)
  1. GEMCITABINE. [Concomitant]
     Active Substance: GEMCITABINE
     Indication: METASTASIS
     Dosage: UNK
     Route: 065
  2. MAGMITT [Suspect]
     Active Substance: MAGNESIUM OXIDE
     Indication: CONSTIPATION
     Dosage: UNK
     Route: 065
     Dates: start: 20151213
  3. LIPACREON [Suspect]
     Active Substance: PANCRELIPASE
     Indication: PANCREATICODUODENECTOMY
     Dosage: UNK
     Route: 048
     Dates: start: 20151227
  4. FEXOFENADINE [Suspect]
     Active Substance: FEXOFENADINE HYDROCHLORIDE
     Indication: PRODUCT USED FOR UNKNOWN INDICATION
     Dosage: UNK
     Route: 065
     Dates: start: 20190403
  5. AMITIZA [Suspect]
     Active Substance: LUBIPROSTONE
     Dosage: 12 MICROGRAM, BID
     Route: 048
     Dates: start: 20200205, end: 20200210
  6. SENNOSIDE [Suspect]
     Active Substance: SENNOSIDES
     Indication: CONSTIPATION
     Dosage: UNK
     Route: 065
     Dates: start: 20160102
  7. AMITIZA [Suspect]
     Active Substance: LUBIPROSTONE
     Indication: CONSTIPATION
     Dosage: 12 MICROGRAM, QD
     Route: 048
     Dates: start: 20200115, end: 20200204
  8. METGLUCO [Suspect]
     Active Substance: METFORMIN HYDROCHLORIDE
     Indication: PANCREATOGENOUS DIABETES
     Dosage: UNK
     Route: 048
     Dates: start: 20170815
  9. FAMOTIDINE. [Concomitant]
     Active Substance: FAMOTIDINE
     Indication: PRODUCT USED FOR UNKNOWN INDICATION
     Dosage: UNK
     Route: 065
     Dates: start: 20151227
  10. RYZODEG 70/30 [Concomitant]
     Active Substance: INSULIN ASPART\INSULIN DEGLUDEC
     Indication: PANCREATOGENOUS DIABETES
     Dosage: UNK
     Route: 058
     Dates: start: 20170207
  11. CISPLATIN. [Concomitant]
     Active Substance: CISPLATIN
     Indication: METASTASIS
     Dosage: UNK
     Route: 065
  12. DAIKENCHUTO [Suspect]
     Active Substance: HERBALS
     Indication: CONSTIPATION
     Dosage: UNK
     Route: 065
     Dates: start: 20160102

REACTIONS (1)
  - Peritonitis [Not Recovered/Not Resolved]

NARRATIVE: CASE EVENT DATE: 20200212
